FAERS Safety Report 8962124 (Version 2)
Quarter: 2013Q1

REPORT INFORMATION
  Report Type: Spontaneous
  Country: US (occurrence: US)
  Receive Date: 20121212
  Receipt Date: 20130109
  Transmission Date: 20140127
  Serious: Yes (Other)
  Sender: FDA-Public Use
  Company Number: US-PFIZER INC-2012313691

PATIENT
  Age: 52 Year
  Sex: Female
  Weight: 49.9 kg

DRUGS (2)
  1. EFFEXOR [Suspect]
     Indication: DEPRESSION
     Dosage: 37.5 MG, 1X/DAY
     Route: 048
     Dates: start: 20121219, end: 20121219
  2. WELLBUTRIN - SLOW RELEASE [Concomitant]
     Dosage: 150 MG, 3X/DAY
     Route: 048

REACTIONS (3)
  - Asthenia [Recovered/Resolved]
  - Hyperhidrosis [Recovered/Resolved]
  - Presyncope [Recovered/Resolved]
